FAERS Safety Report 8409018 (Version 2)
Quarter: 2013Q2

REPORT INFORMATION
  Report Type: Spontaneous
  Country: US (occurrence: None)
  Receive Date: 20111227
  Receipt Date: 20120426
  Transmission Date: 20140414
  Serious: No
  Sender: FDA-Public Use
  Company Number: PHEH2011US06014

PATIENT
  Age: 35 Year
  Sex: Female

DRUGS (5)
  1. GILENYA [Suspect]
     Indication: MULTIPLE SCLEROSIS
     Dosage: 0.5 MG, QD, ORAL
     Route: 048
     Dates: start: 201105
  2. VITAMIN D (ERGOCALCIFEROL) [Concomitant]
  3. VITAMIN E [Concomitant]
  4. VITAMIN C [Concomitant]
  5. CALCIUM W/MAGNESIUM (CALCIUM , MAGNESIUM) [Concomitant]

REACTIONS (3)
  - SLUGGISHNESS [None]
  - FATIGUE [None]
  - LETHARGY [None]
